FAERS Safety Report 5451982-0 (Version None)
Quarter: 2007Q3

REPORT INFORMATION
  Report Type: 
  Country: None (occurrence: None)
  Receive Date: 20070912
  Receipt Date: 20070830
  Transmission Date: 20080115
  Serious: Yes (Congenital Anomaly)
  Sender: FDA-Public Use
  Company Number: GXKR2007KR07515

PATIENT
  Sex: Female

DRUGS (2)
  1. AMLODIPINE [Suspect]
     Dosage: TRANSPLACENTAL
     Route: 064
  2. ATENOLOL [Suspect]
     Dosage: TRANSPLACENTAL
     Route: 064

REACTIONS (6)
  - ASCITES [None]
  - DRUG EXPOSURE DURING PREGNANCY [None]
  - GASTROINTESTINAL MALFORMATION [None]
  - MENTALLY LATE DEVELOPER [None]
  - MUSCULAR WEAKNESS [None]
  - UNDERWEIGHT [None]
